FAERS Safety Report 20722586 (Version 1)
Quarter: 2022Q2

REPORT INFORMATION
  Report Type: Spontaneous
  Country: JP (occurrence: JP)
  Receive Date: 20220419
  Receipt Date: 20220419
  Transmission Date: 20220721
  Serious: Yes (Other)
  Sender: FDA-Public Use
  Company Number: JP-JNJFOC-20220328253

PATIENT
  Age: 74 Year
  Sex: Male

DRUGS (9)
  1. ZYTIGA [Suspect]
     Active Substance: ABIRATERONE ACETATE
     Indication: Prostate cancer metastatic
     Route: 048
     Dates: start: 20211129, end: 20211221
  2. ERLEADA [Suspect]
     Active Substance: APALUTAMIDE
     Indication: Prostate cancer metastatic
     Route: 048
     Dates: start: 20210706, end: 20210918
  3. XTANDI [Suspect]
     Active Substance: ENZALUTAMIDE
     Indication: Prostate cancer metastatic
     Dosage: DOSE UNKNOWN
     Route: 048
     Dates: start: 20211125, end: 20211126
  4. PREDONINE [Concomitant]
     Active Substance: PREDNISOLONE
     Indication: Prostate cancer metastatic
     Route: 048
     Dates: start: 20211129, end: 20211221
  5. DEGARELIX [Concomitant]
     Active Substance: DEGARELIX
     Indication: Prostate cancer metastatic
     Route: 065
     Dates: start: 20210115
  6. DENOSUMAB [Concomitant]
     Active Substance: DENOSUMAB
     Indication: Prostate cancer metastatic
     Route: 065
     Dates: start: 20210115
  7. CALCIUM CARBONATE\CHOLECALCIFEROL\MAGNESIUM CARBONATE [Concomitant]
     Active Substance: CALCIUM CARBONATE\CHOLECALCIFEROL\MAGNESIUM CARBONATE
     Indication: Product used for unknown indication
     Route: 048
     Dates: start: 20210706
  8. CALCIUM CARBONATE\CHOLECALCIFEROL\MAGNESIUM CARBONATE [Concomitant]
     Active Substance: CALCIUM CARBONATE\CHOLECALCIFEROL\MAGNESIUM CARBONATE
     Dosage: DOSE UNKNOWN
     Route: 048
     Dates: start: 20211125
  9. FAMOTIDINE [Concomitant]
     Active Substance: FAMOTIDINE
     Indication: Product used for unknown indication
     Dosage: DOSE UNKNOWN
     Route: 065
     Dates: start: 20211129

REACTIONS (4)
  - Drug-induced liver injury [Recovered/Resolved]
  - Rash [Recovered/Resolved]
  - Vomiting [Unknown]
  - Coronavirus infection [Unknown]

NARRATIVE: CASE EVENT DATE: 20210918
